FAERS Safety Report 21030850 (Version 2)
Quarter: 2024Q2

REPORT INFORMATION
  Report Type: Spontaneous
  Country: US (occurrence: None)
  Receive Date: 20220701
  Receipt Date: 20240524
  Transmission Date: 20240715
  Serious: No
  Sender: FDA-Public Use
  Company Number: US-ROCHE-2839692

PATIENT
  Age: 73 Year
  Sex: Female
  Weight: 101.88 kg

DRUGS (2)
  1. ACTEMRA [Suspect]
     Active Substance: TOCILIZUMAB
     Indication: Rheumatoid arthritis
     Dosage: 162MG/0.9M
     Route: 058
     Dates: start: 20200216
  2. ACTEMRA [Suspect]
     Active Substance: TOCILIZUMAB

REACTIONS (10)
  - Pain [Unknown]
  - Finger deformity [Unknown]
  - Pain in extremity [Unknown]
  - Joint swelling [Unknown]
  - Arthralgia [Unknown]
  - Hypoaesthesia [Unknown]
  - Paraesthesia [Unknown]
  - Limb discomfort [Unknown]
  - Palmar-plantar erythrodysaesthesia syndrome [Unknown]
  - Skin disorder [Unknown]

NARRATIVE: CASE EVENT DATE: 20210501
